FAERS Safety Report 19027403 (Version 1)
Quarter: 2021Q1

REPORT INFORMATION
  Report Type: Spontaneous
  Country: US (occurrence: US)
  Receive Date: 20210318
  Receipt Date: 20210318
  Transmission Date: 20210420
  Serious: Yes (Other)
  Sender: FDA-Public Use
  Company Number: US-TEVA-2021-US-1882016

PATIENT
  Sex: Male
  Weight: 120.2 kg

DRUGS (19)
  1. VALSARTAN OHM LABORATORIES [Suspect]
     Active Substance: VALSARTAN
     Route: 048
     Dates: start: 20180103, end: 20190109
  2. VALSARTAN JUBILANT CADISTA [Suspect]
     Active Substance: VALSARTAN
     Indication: HYPERTENSION
     Dosage: FREQUENCY NOT REPORTED
     Route: 048
     Dates: start: 20200225, end: 20200527
  3. PREDNISONE. [Concomitant]
     Active Substance: PREDNISONE
     Indication: INFLAMMATION
     Route: 065
     Dates: start: 201808
  4. DILTIAZEM. [Concomitant]
     Active Substance: DILTIAZEM
     Dosage: ER CAPSULE
     Route: 048
     Dates: start: 20200427
  5. PRAVASTATIN. [Concomitant]
     Active Substance: PRAVASTATIN
     Dosage: EXPIRED
     Route: 048
     Dates: start: 20200131
  6. FUROSEMIDE. [Concomitant]
     Active Substance: FUROSEMIDE
     Indication: CARDIAC FAILURE CONGESTIVE
     Route: 048
     Dates: start: 20170831
  7. METOPROLOL. [Concomitant]
     Active Substance: METOPROLOL
     Indication: HYPERTENSION
     Route: 065
     Dates: start: 20080910
  8. VALSARTAN/HYDROCHLOROTHIAZIDE SANDOZ [Suspect]
     Active Substance: HYDROCHLOROTHIAZIDE\VALSARTAN
     Indication: HYPERTENSION
     Route: 048
     Dates: start: 20190115, end: 20190426
  9. VALSARTAN. [Suspect]
     Active Substance: VALSARTAN
     Indication: HYPERTENSION
     Route: 048
     Dates: start: 20040913, end: 20060115
  10. VALSARTAN. [Suspect]
     Active Substance: VALSARTAN
     Indication: HYPERTENSION
     Route: 048
     Dates: start: 20130528, end: 20140609
  11. METOPROLOL. [Concomitant]
     Active Substance: METOPROLOL
     Dosage: 2 TABS IN AM AND 1 TABLET AT NIGHT?LAST DOSE 29?JUL?2018 AT?UNKNOWN TIME
     Route: 065
     Dates: start: 20180729
  12. VALSARTAN SOLCO HEALTHCARE [Suspect]
     Active Substance: VALSARTAN
     Indication: HYPERTENSION
     Dosage: VALSARTAN ? 320 MG?HYDROCHLOROTHIAZIDE ? 25 MG
     Route: 048
     Dates: start: 20180830, end: 20181029
  13. VALSARTAN. [Suspect]
     Active Substance: VALSARTAN
     Route: 048
     Dates: start: 20140617, end: 20150726
  14. FUROSEMIDE. [Concomitant]
     Active Substance: FUROSEMIDE
     Route: 048
     Dates: start: 20170831
  15. ALBUTEROL. [Concomitant]
     Active Substance: ALBUTEROL
     Indication: ASTHMA
     Dosage: (2.5 MG/3ML) 0.083 PERCENTAGE NEBULIZER SOLUTION?TAKE 2.5 MG BY NEBULIZATION EVERY 4?HOURS AS NEEDED
     Route: 050
     Dates: start: 20181019
  16. VALSARTAN W/HYDROCHLOROTHIAZIDE ACTAVIS [Suspect]
     Active Substance: HYDROCHLOROTHIAZIDE\VALSARTAN
     Indication: HYPERTENSION
     Dosage: VALSARTAN ?320 MG?HYDROCHLOROTHIAZIDE ? 25 MG
     Route: 048
     Dates: start: 20150804, end: 20160501
  17. VALSARTAN W/HYDROCHLOROTHIAZIDE ACTAVIS [Suspect]
     Active Substance: HYDROCHLOROTHIAZIDE\VALSARTAN
     Dosage: VALSARTAN ?320 MG?HYDROCHLOROTHIAZIDE ? 25 MG
     Route: 048
     Dates: start: 20160503, end: 20161113
  18. VALSARTAN OHM LABORATORIES [Suspect]
     Active Substance: VALSARTAN
     Indication: HYPERTENSION
     Route: 048
     Dates: start: 20161114, end: 20170926
  19. ALLOPURINOL. [Concomitant]
     Active Substance: ALLOPURINOL
     Route: 048
     Dates: start: 20200511

REACTIONS (1)
  - Colon cancer stage III [Unknown]
